FAERS Safety Report 4558823-4 (Version None)
Quarter: 2005Q1

REPORT INFORMATION
  Report Type: 
  Country: None (occurrence: None)
  Receive Date: 20050121
  Receipt Date: 20050112
  Transmission Date: 20050727
  Serious: Yes (Hospitalization)
  Sender: FDA-Public Use
  Company Number: ES-GLAXOSMITHKLINE-B0364817A

PATIENT
  Age: 53 Year
  Sex: Male

DRUGS (1)
  1. CLAMOXYL [Suspect]
     Indication: PHARYNGOLARYNGEAL PAIN
     Dosage: 2G PER DAY
     Route: 048
     Dates: start: 20040320, end: 20040321

REACTIONS (2)
  - PRURITUS [None]
  - PYREXIA [None]
